FAERS Safety Report 22930208 (Version 2)
Quarter: 2024Q2

REPORT INFORMATION
  Report Type: Spontaneous
  Country: IT (occurrence: IT)
  Receive Date: 20230911
  Receipt Date: 20240426
  Transmission Date: 20240715
  Serious: Yes (Hospitalization, Other)
  Sender: FDA-Public Use
  Company Number: IT-SUN PHARMACEUTICAL INDUSTRIES LTD-2023R1-404331

PATIENT
  Age: 31 Year
  Sex: Female

DRUGS (4)
  1. VALPROATE SODIUM [Suspect]
     Active Substance: VALPROATE SODIUM
     Indication: Epilepsy
     Dosage: 500 MILLIGRAM, BID
     Route: 065
  2. MONTELUKAST [Suspect]
     Active Substance: MONTELUKAST SODIUM
     Indication: Respiratory tract infection
     Dosage: UNK
     Route: 065
  3. SOBREROL, TRANS-, (+/-)- [Suspect]
     Active Substance: SOBREROL, TRANS-, (+/-)-
     Indication: Respiratory tract infection
     Dosage: UNK
     Route: 065
  4. CEFONICID [Suspect]
     Active Substance: CEFONICID
     Indication: Respiratory tract infection
     Dosage: UNK
     Route: 065

REACTIONS (1)
  - Parkinsonism [Unknown]
